FAERS Safety Report 13179109 (Version 4)
Quarter: 2017Q2

REPORT INFORMATION
  Report Type: Report from Study
  Country: US (occurrence: US)
  Receive Date: 20170202
  Receipt Date: 20170405
  Transmission Date: 20170830
  Serious: Yes (Other)
  Sender: FDA-Public Use
  Company Number: US-AMGEN-USASL2017016676

PATIENT
  Age: 9 Year
  Sex: Female
  Weight: 22.67 kg

DRUGS (2)
  1. ENBREL [Suspect]
     Active Substance: ETANERCEPT
     Dosage: 25 MG, QWK
     Route: 065
     Dates: start: 2017
  2. ENBREL [Suspect]
     Active Substance: ETANERCEPT
     Indication: PSORIASIS
     Dosage: 25 MG, QWK
     Route: 065
     Dates: start: 20170130

REACTIONS (6)
  - Streptococcal infection [Recovered/Resolved]
  - Paranasal sinus hypersecretion [Unknown]
  - Injection site pain [Unknown]
  - Oropharyngeal pain [Unknown]
  - Off label use [Unknown]
  - Body fat disorder [Unknown]

NARRATIVE: CASE EVENT DATE: 2017
